FAERS Safety Report 8397690-8 (Version None)
Quarter: 2012Q2

REPORT INFORMATION
  Report Type: 
  Country: None (occurrence: None)
  Receive Date: 20120531
  Receipt Date: 20120529
  Transmission Date: 20120825
  Serious: No
  Sender: FDA-Public Use
  Company Number: US-PFIZER INC-2012130301

PATIENT
  Sex: Female
  Weight: 163 kg

DRUGS (6)
  1. CHANTIX [Suspect]
     Indication: SMOKING CESSATION THERAPY
     Dosage: 0.5 MG, 1X/DAY
     Dates: start: 20111001, end: 20111001
  2. CHANTIX [Suspect]
     Dosage: 0.5 MG, UNK
     Dates: start: 20111001, end: 20111115
  3. METFORMIN [Concomitant]
     Indication: DIABETES MELLITUS
     Dosage: 500 MG, 2X/DAY
  4. CHANTIX [Suspect]
     Dosage: UNK
     Dates: start: 20120501
  5. INVEGA [Concomitant]
     Indication: SCHIZOPHRENIA
     Dosage: UNK, MONTHLY
  6. METOPROLOL [Concomitant]
     Indication: HYPERTENSION
     Dosage: 100 MG, 2X/DAY

REACTIONS (1)
  - ABNORMAL DREAMS [None]
